FAERS Safety Report 5611694-7 (Version None)
Quarter: 2008Q1

REPORT INFORMATION
  Report Type: 
  Country: None (occurrence: None)
  Receive Date: 20080201
  Receipt Date: 20080124
  Transmission Date: 20080703
  Serious: Yes (Hospitalization, Congenital Anomaly)
  Sender: FDA-Public Use
  Company Number: FR-ABBOTT-08P-056-0435118-00

PATIENT
  Sex: Male

DRUGS (3)
  1. DEPAKOTE [Suspect]
     Indication: DRUG EXPOSURE DURING PREGNANCY
     Route: 064
  2. MEPRONIZINE [Suspect]
     Indication: DRUG EXPOSURE DURING PREGNANCY
     Route: 064
  3. CLONAZEPAM [Suspect]
     Indication: DRUG EXPOSURE DURING PREGNANCY
     Route: 064

REACTIONS (10)
  - AGITATION NEONATAL [None]
  - CLEFT PALATE [None]
  - DYSMORPHISM [None]
  - FLATULENCE [None]
  - FOETAL GROWTH RETARDATION [None]
  - HYPOTONIA NEONATAL [None]
  - LIP DISORDER [None]
  - LOW SET EARS [None]
  - NOSE DEFORMITY [None]
  - RETROGNATHIA [None]
